FAERS Safety Report 6074730-2 (Version None)
Quarter: 2009Q1

REPORT INFORMATION
  Report Type: 
  Country: None (occurrence: None)
  Receive Date: 20090212
  Receipt Date: 20090206
  Transmission Date: 20090719
  Serious: Yes (Hospitalization)
  Sender: FDA-Public Use
  Company Number: BR-JNJFOC-20090201724

PATIENT
  Sex: Female
  Weight: 65 kg

DRUGS (1)
  1. ORTHO EVRA [Suspect]
     Indication: CONTRACEPTION
     Dosage: ETHINYL ESTRADIOL 0.6 MG/ NORELESTROMIN 6 MG
     Route: 062

REACTIONS (3)
  - CHOLELITHIASIS [None]
  - SURGERY [None]
  - VAGINAL HAEMORRHAGE [None]
